FAERS Safety Report 17950702 (Version 1)
Quarter: 2020Q2

REPORT INFORMATION
  Report Type: Spontaneous
  Country: SE (occurrence: SE)
  Receive Date: 20200626
  Receipt Date: 20200626
  Transmission Date: 20200714
  Serious: Yes (Hospitalization)
  Sender: FDA-Public Use
  Company Number: NVSC2020SE176977

PATIENT
  Age: 75 Year
  Sex: Male

DRUGS (33)
  1. PRIMPERAN [Concomitant]
     Active Substance: METOCLOPRAMIDE HYDROCHLORIDE
     Dosage: 10 MG
     Route: 065
  2. BETAPRED [Concomitant]
     Active Substance: BETAMETHASONE SODIUM PHOSPHATE
     Dosage: 4 MG (ENLIGT SEPARAT BEHANDLINGSSCHEMA)
     Route: 065
     Dates: start: 20200402
  3. ONDANSETRON TEVA [Concomitant]
     Active Substance: ONDANSETRON
     Indication: PRODUCT USED FOR UNKNOWN INDICATION
     Dosage: UNK (ENLIGT SEPARAT BCHANDLINGSSCHEMA)
     Route: 065
     Dates: start: 20200402
  4. OXYNORM [Concomitant]
     Active Substance: OXYCODONE HYDROCHLORIDE
     Dosage: 5 MG (1-2 KAPSLAR VID BEHOV MAX 6  ST PER DYGN)
     Route: 065
     Dates: start: 20200325
  5. IRINOTECAN [Suspect]
     Active Substance: IRINOTECAN
     Indication: OESOPHAGEAL CARCINOMA
     Dosage: UNK
     Route: 042
     Dates: start: 20200421, end: 20200421
  6. SOLUVIT [Concomitant]
     Active Substance: VITAMINS
     Indication: PRODUCT USED FOR UNKNOWN INDICATION
     Dosage: UNK (VB)
     Route: 065
     Dates: start: 20200212
  7. BAKLOFEN [Concomitant]
     Active Substance: BACLOFEN
     Indication: PRODUCT USED FOR UNKNOWN INDICATION
     Dosage: 5 MG (MAX 15 MG/DYGN)
     Route: 065
     Dates: start: 20190916
  8. ALVEDON [Concomitant]
     Active Substance: ACETAMINOPHEN
     Indication: PRODUCT USED FOR UNKNOWN INDICATION
     Dosage: 3000 MG, QD
     Route: 065
     Dates: start: 20200319
  9. BISOLVON [Concomitant]
     Active Substance: BROMHEXINE HYDROCHLORIDE
     Indication: PRODUCT USED FOR UNKNOWN INDICATION
     Dosage: 5 ML (MAX 15 ML/DYGN)
     Route: 065
     Dates: start: 20191011
  10. TARGINIQ ER [Concomitant]
     Active Substance: NALOXONE HYDROCHLORIDE\OXYCODONE HYDROCHLORIDE
     Indication: PRODUCT USED FOR UNKNOWN INDICATION
     Dosage: 2 DF, QD (20 MG/10 MG )
     Route: 065
     Dates: start: 20200416
  11. OXALIPLATIN. [Suspect]
     Active Substance: OXALIPLATIN
     Indication: OESOPHAGEAL CARCINOMA
     Dosage: 1 DF, QD
     Route: 042
     Dates: start: 20200421, end: 20200421
  12. ADDAVEN [Concomitant]
     Active Substance: ELECTROLYTES NOS\MINERALS
     Indication: PRODUCT USED FOR UNKNOWN INDICATION
     Dosage: UNK (VB)
     Route: 065
     Dates: start: 20200212
  13. ACETYL [Concomitant]
     Indication: PRODUCT USED FOR UNKNOWN INDICATION
     Dosage: 400 MG, QD
     Route: 065
     Dates: start: 20190814
  14. AMLODIPIN [Concomitant]
     Active Substance: AMLODIPINE BESYLATE
     Indication: PRODUCT USED FOR UNKNOWN INDICATION
     Dosage: 20 MG, QD
     Route: 065
     Dates: start: 20200310
  15. BETAPRED [Concomitant]
     Active Substance: BETAMETHASONE SODIUM PHOSPHATE
     Indication: PRODUCT USED FOR UNKNOWN INDICATION
     Dosage: UNK (ENLIGT SEPARAT BEHANDLINGSSCHEMA)
     Route: 065
     Dates: start: 20190822
  16. EMEND [Concomitant]
     Active Substance: APREPITANT
     Indication: PRODUCT USED FOR UNKNOWN INDICATION
     Dosage: UNK (ENLIGT SEPARAT BEHANDLINGSSCHEMA)
     Route: 065
     Dates: start: 20200402
  17. NATRIUMKLORID [Concomitant]
     Active Substance: SODIUM CHLORIDE
     Indication: PRODUCT USED FOR UNKNOWN INDICATION
     Dosage: 2000 MG, QD
     Route: 065
     Dates: start: 20191125
  18. SOOLANTRA [Concomitant]
     Active Substance: IVERMECTIN
     Indication: PRODUCT USED FOR UNKNOWN INDICATION
     Dosage: 1 DF (1 G?NG/DAG)
     Route: 065
     Dates: start: 20171115
  19. OMEPRAZOLE. [Concomitant]
     Active Substance: OMEPRAZOLE
     Indication: PRODUCT USED FOR UNKNOWN INDICATION
     Dosage: 20 MG, QD
     Route: 065
     Dates: start: 20200402
  20. ONDANSETRON [Concomitant]
     Active Substance: ONDANSETRON
     Indication: PRODUCT USED FOR UNKNOWN INDICATION
     Dosage: UNK (ENLIGT SEPARAT BCHANDLINGSSCHEMA)
     Route: 065
     Dates: start: 20200402
  21. OXASCAND [Concomitant]
     Active Substance: OXAZEPAM
     Indication: PRODUCT USED FOR UNKNOWN INDICATION
     Dosage: 5 MG (MAX 4 ST /DYGN), PRN (AS NECESSARY)
     Route: 065
     Dates: start: 20191221
  22. OLIMEL [Concomitant]
     Active Substance: AMINO ACIDS\DEXTROSE\SOYBEAN OIL
     Indication: PRODUCT USED FOR UNKNOWN INDICATION
     Dosage: UNK (VB)
     Route: 065
     Dates: start: 20200212
  23. OXYNORM [Concomitant]
     Active Substance: OXYCODONE HYDROCHLORIDE
     Indication: PRODUCT USED FOR UNKNOWN INDICATION
     Dosage: UNK (0,5-1 ML VID BEHOV)
     Route: 065
     Dates: start: 20200322
  24. INNOHEP [Concomitant]
     Active Substance: TINZAPARIN SODIUM
     Indication: PRODUCT USED FOR UNKNOWN INDICATION
     Dosage: 2 DF (4500 UNITS), QD
     Route: 065
     Dates: start: 20191010
  25. ESOMEPRAZOL [Concomitant]
     Active Substance: ESOMEPRAZOLE
     Indication: PRODUCT USED FOR UNKNOWN INDICATION
     Dosage: 80 MG, QD
     Route: 065
     Dates: start: 20191025
  26. VANCOCIN [Concomitant]
     Active Substance: VANCOMYCIN HYDROCHLORIDE
     Indication: PRODUCT USED FOR UNKNOWN INDICATION
     Dosage: 250 MG, QD
     Route: 065
     Dates: start: 20200318
  27. GLYCERYL TRINITRATE [Concomitant]
     Active Substance: NITROGLYCERIN
     Indication: PRODUCT USED FOR UNKNOWN INDICATION
     Dosage: 0.5 MG
     Route: 060
     Dates: start: 20150705
  28. VIAGRA [Concomitant]
     Active Substance: SILDENAFIL CITRATE
     Indication: PRODUCT USED FOR UNKNOWN INDICATION
     Dosage: 100 MG (MAX 1 PER DYGN)
     Route: 065
     Dates: start: 20100726
  29. VITALIPID [Concomitant]
     Active Substance: ERGOCALCIFEROL\PHYTONADIONE\RETINOL\TOCOPHEROL
     Indication: PRODUCT USED FOR UNKNOWN INDICATION
     Dosage: UNK (VB)
     Route: 065
     Dates: start: 20200212
  30. PRIMPERAN [Concomitant]
     Active Substance: METOCLOPRAMIDE HYDROCHLORIDE
     Indication: PRODUCT USED FOR UNKNOWN INDICATION
     Dosage: UNK (ENLIGT SEPARAT BCHANDLINGSSCHEMA)
     Route: 065
     Dates: start: 20200402
  31. CANDEXETIL [Concomitant]
     Active Substance: CANDESARTAN
     Indication: PRODUCT USED FOR UNKNOWN INDICATION
     Dosage: 32 MG, QD
     Route: 065
     Dates: start: 20200320
  32. CILAXORAL [Concomitant]
     Active Substance: SODIUM PICOSULFATE
     Indication: PRODUCT USED FOR UNKNOWN INDICATION
     Dosage: UNK (ENLIGT SEPARAT BEHANDLINGSSCHEMA)
     Route: 065
     Dates: start: 20200311
  33. MOVICOL [Concomitant]
     Active Substance: POLYETHYLENE GLYCOL 3350\POTASSIUM CHLORIDE\SODIUM BICARBONATE\SODIUM CHLORIDE
     Indication: PRODUCT USED FOR UNKNOWN INDICATION
     Dosage: UNK (1-2 P?SAR VB, MAX 4 /DYGN)
     Route: 065
     Dates: start: 20200102

REACTIONS (4)
  - Dizziness [Recovered/Resolved]
  - Vision blurred [Recovered/Resolved]
  - Temporomandibular joint syndrome [Recovered/Resolved]
  - Chest discomfort [Recovered/Resolved]

NARRATIVE: CASE EVENT DATE: 20200421
